FAERS Safety Report 23863348 (Version 1)
Quarter: 2024Q2

REPORT INFORMATION
  Report Type: Report from Study
  Country: AR (occurrence: AR)
  Receive Date: 20240516
  Receipt Date: 20240516
  Transmission Date: 20240715
  Serious: Yes (Hospitalization)
  Sender: FDA-Public Use
  Company Number: AR-ABBVIE-5760655

PATIENT
  Age: 18 Year
  Sex: Male

DRUGS (1)
  1. HUMIRA [Suspect]
     Active Substance: ADALIMUMAB
     Indication: Colitis ulcerative
     Dosage: FORM STRENGTH: 40MG
     Route: 058
     Dates: start: 20231009, end: 202403

REACTIONS (3)
  - Rectal ulcer [Recovered/Resolved]
  - Platelet count increased [Recovered/Resolved]
  - Red blood cell count increased [Recovered/Resolved]

NARRATIVE: CASE EVENT DATE: 20240410
